FAERS Safety Report 16390213 (Version 2)
Quarter: 2019Q3

REPORT INFORMATION
  Report Type: Report from Study
  Country: US (occurrence: US)
  Receive Date: 20190604
  Receipt Date: 20190708
  Transmission Date: 20191004
  Serious: Yes (Hospitalization, Other)
  Sender: FDA-Public Use
  Company Number: US-JNJFOC-20190600173

PATIENT
  Age: 78 Year
  Sex: Male

DRUGS (3)
  1. IMBRUVICA [Suspect]
     Active Substance: IBRUTINIB
     Route: 048
     Dates: start: 20190604
  2. IMBRUVICA [Suspect]
     Active Substance: IBRUTINIB
     Indication: CHRONIC LYMPHOCYTIC LEUKAEMIA
     Route: 048
     Dates: start: 20190508
  3. INSULIN [Suspect]
     Active Substance: INSULIN NOS
     Indication: BLOOD GLUCOSE INCREASED
     Route: 065

REACTIONS (4)
  - Asthenia [Recovering/Resolving]
  - Pneumonia [Recovering/Resolving]
  - Blood glucose increased [Unknown]
  - Injection site infection [Unknown]

NARRATIVE: CASE EVENT DATE: 20190521
